FAERS Safety Report 4616922-2 (Version None)
Quarter: 2005Q1

REPORT INFORMATION
  Report Type: 
  Country: None (occurrence: None)
  Receive Date: 20050321
  Receipt Date: 20050309
  Transmission Date: 20050727
  Serious: Yes (Hospitalization, Other)
  Sender: FDA-Public Use
  Company Number: 2004121406

PATIENT
  Age: 37 Year
  Sex: Female

DRUGS (7)
  1. DEPO-PROVERA [Suspect]
     Indication: CONTRACEPTION
     Dosage: SEE IMAGE
     Dates: start: 20040910, end: 20040910
  2. DEPO-PROVERA [Suspect]
     Indication: CONTRACEPTION
     Dosage: SEE IMAGE
     Dates: start: 20041208, end: 20041208
  3. CEPHALEXIN MONOHYDRATE [Concomitant]
  4. BROMAZEPAM (BROMAZEPAM) [Concomitant]
  5. HYOSCINE HBR HYT [Concomitant]
  6. DICLOFENAC SODIUM [Concomitant]
  7. DICLOFENAC POTASSIUM [Concomitant]

REACTIONS (7)
  - ABDOMINAL PAIN [None]
  - GALLBLADDER OPERATION [None]
  - HEADACHE [None]
  - MENSTRUATION IRREGULAR [None]
  - MUSCLE SPASMS [None]
  - NAUSEA [None]
  - VAGINAL HAEMORRHAGE [None]
